FAERS Safety Report 16907965 (Version 1)
Quarter: 2019Q4

REPORT INFORMATION
  Report Type: Spontaneous
  Country: US (occurrence: US)
  Receive Date: 20191011
  Receipt Date: 20191011
  Transmission Date: 20200122
  Serious: Yes (Hospitalization)
  Sender: FDA-Public Use
  Company Number: US-MYLANLABS-2019M1095156

PATIENT
  Age: 74 Year
  Sex: Female

DRUGS (7)
  1. PHENYTOIN. [Suspect]
     Active Substance: PHENYTOIN
     Indication: STATUS EPILEPTICUS
     Dosage: LOADING DOSE
     Route: 065
  2. LEVETIRACETAM. [Suspect]
     Active Substance: LEVETIRACETAM
     Dosage: 1500 MILLIGRAM
     Route: 065
  3. MIDAZOLAM [Suspect]
     Active Substance: MIDAZOLAM HYDROCHLORIDE
     Indication: STATUS EPILEPTICUS
     Dosage: DRIP
     Route: 065
  4. PHENYTOIN. [Suspect]
     Active Substance: PHENYTOIN
     Dosage: MAINTENANCE
     Route: 065
  5. LEVETIRACETAM. [Suspect]
     Active Substance: LEVETIRACETAM
     Indication: STATUS EPILEPTICUS
     Dosage: THEREAFTER, DOSAGES WAS INCRESED
     Route: 065
  6. LACOSAMIDE. [Suspect]
     Active Substance: LACOSAMIDE
     Dosage: MAINTENANCE
     Route: 065
  7. LACOSAMIDE. [Suspect]
     Active Substance: LACOSAMIDE
     Indication: STATUS EPILEPTICUS
     Dosage: LOADING DOSE
     Route: 065

REACTIONS (1)
  - Drug ineffective [Unknown]
